FAERS Safety Report 21794557 (Version 3)
Quarter: 2023Q1

REPORT INFORMATION
  Report Type: Spontaneous
  Country: JP (occurrence: JP)
  Receive Date: 20221229
  Receipt Date: 20230222
  Transmission Date: 20230418
  Serious: Yes (Other)
  Sender: FDA-Public Use
  Company Number: JP-OTSUKA-2022_056062

PATIENT
  Age: 5 Decade
  Sex: Male

DRUGS (1)
  1. SAMSCA [Suspect]
     Active Substance: TOLVAPTAN
     Indication: Congenital cystic kidney disease
     Dosage: 60 MG/DAY
     Route: 048

REACTIONS (2)
  - Renal impairment [Recovering/Resolving]
  - Fluid intake reduced [Recovering/Resolving]

NARRATIVE: CASE EVENT DATE: 20221223
